FAERS Safety Report 9288710 (Version 1)
Quarter: 2013Q2

REPORT INFORMATION
  Report Type: Spontaneous
  Country: US (occurrence: None)
  Receive Date: 20130513
  Receipt Date: 20130513
  Transmission Date: 20140414
  Serious: Yes (Life-Threatening, Disabling)
  Sender: FDA-Public Use
  Company Number: None

PATIENT
  Age: 59 Year
  Sex: Female

DRUGS (1)
  1. LEVAQUIN [Suspect]
     Indication: ARTHROPOD BITE

REACTIONS (8)
  - Nightmare [None]
  - Gait disturbance [None]
  - Dizziness [None]
  - Dizziness [None]
  - Thinking abnormal [None]
  - Platelet count decreased [None]
  - Feeling abnormal [None]
  - Feeling abnormal [None]
